FAERS Safety Report 10025162 (Version 4)
Quarter: 2014Q2

REPORT INFORMATION
  Report Type: Spontaneous
  Country: US (occurrence: None)
  Receive Date: 20140314
  Receipt Date: 20140515
  Transmission Date: 20141212
  Serious: Yes (Other)
  Sender: FDA-Public Use
  Company Number: ADR-2014-00404

PATIENT
  Age: 55 Year
  Sex: Male

DRUGS (5)
  1. LIORESAL [Suspect]
     Indication: MUSCLE SPASTICITY
  2. MORPHINE [Suspect]
  3. BACLOFEN [Suspect]
  4. COMPOUNDED BACLOFEN INTRATHECAL - 400 MCG/ML [Suspect]
  5. BACLOFEN INTRATHECAL [Suspect]

REACTIONS (13)
  - Device malfunction [None]
  - Depressed level of consciousness [None]
  - Gait disturbance [None]
  - Drug withdrawal syndrome [None]
  - Pain [None]
  - Overdose [None]
  - Incorrect dose administered by device [None]
  - Device computer issue [None]
  - Muscle spasms [None]
  - Fear [None]
  - Muscle spasticity [None]
  - Rebound effect [None]
  - Impaired driving ability [None]
